FAERS Safety Report 8834245 (Version 1)
Quarter: 2012Q4

REPORT INFORMATION
  Report Type: 
  Country: US (occurrence: US)
  Receive Date: 20121010
  Receipt Date: 20121010
  Transmission Date: 20130627
  Serious: Yes (Hospitalization)
  Sender: FDA-Public Use
  Company Number: US-ASTRAZENECA-2012SE75611

PATIENT
  Age: 76 Year
  Sex: Male
  Weight: 70.3 kg

DRUGS (9)
  1. PULMICORT FLEXHALER [Suspect]
     Indication: ASTHMA
     Route: 055
     Dates: start: 1997, end: 2011
  2. MOMETASONE FUROATE [Suspect]
     Indication: ASTHMA
     Route: 065
     Dates: start: 2011
  3. WELLBUTRIN XL [Concomitant]
     Indication: DEPRESSION
     Route: 048
     Dates: start: 2007
  4. PREDNISONE [Concomitant]
     Indication: SARCOIDOSIS
     Route: 048
     Dates: start: 2007
  5. LIPITOR [Concomitant]
     Indication: BLOOD CHOLESTEROL ABNORMAL
     Route: 048
  6. BYSTOLIC [Concomitant]
     Indication: HYPERTENSION
     Route: 048
     Dates: start: 2007
  7. SINGULAIR [Concomitant]
     Indication: ASTHMA
     Route: 048
  8. FLONASE [Concomitant]
     Indication: ASTHMA
     Dosage: PRN
     Route: 045
  9. PROTONIX [Concomitant]
     Indication: GASTROOESOPHAGEAL REFLUX DISEASE
     Route: 048

REACTIONS (4)
  - Sarcoidosis [Unknown]
  - Hypertension [Unknown]
  - Dyspnoea [Unknown]
  - Depression [Unknown]
